FAERS Safety Report 11857689 (Version 1)
Quarter: 2015Q4

REPORT INFORMATION
  Report Type: Spontaneous
  Country: US (occurrence: None)
  Receive Date: 20151221
  Receipt Date: 20151221
  Transmission Date: 20160305
  Serious: Yes (Life-Threatening, Hospitalization, Disabling, Other)
  Sender: FDA-Public Use
  Company Number: None

PATIENT
  Age: 35 Year
  Sex: Female
  Weight: 70.31 kg

DRUGS (14)
  1. LAMISIL TERBINAFINE 250 MG EXPRESS SCRIPTS GEBERIC [Suspect]
     Active Substance: TERBINAFINE HYDROCHLORIDE
     Indication: PRODUCT QUALITY ISSUE
     Route: 048
     Dates: start: 20150215, end: 20150302
  2. SPRINOLACTONE [Concomitant]
  3. PRESERVATIVE FREE EYE DROPS/OINTMENT [Concomitant]
  4. LAMISIL TERBINAFINE 250 MG EXPRESS SCRIPTS GEBERIC [Suspect]
     Active Substance: TERBINAFINE HYDROCHLORIDE
     Indication: ONYCHOMYCOSIS
     Route: 048
     Dates: start: 20150215, end: 20150302
  5. TORREDAL [Concomitant]
  6. OTHER PHARMACEUTICALS [Concomitant]
  7. ALPRAZOLAM. [Concomitant]
     Active Substance: ALPRAZOLAM
  8. LOTIMAX GEL/OINTMENT [Concomitant]
  9. HYDROXYZINE PAOMATE [Concomitant]
  10. RESTASIS [Concomitant]
     Active Substance: CYCLOSPORINE
  11. HYDROXYZINE [Concomitant]
     Active Substance: HYDROXYZINE\HYDROXYZINE HYDROCHLORIDE
  12. VARIOUS CREAMS [Concomitant]
  13. FISH OIL [Concomitant]
     Active Substance: FISH OIL
  14. RANETIDINE [Concomitant]

REACTIONS (14)
  - Dry eye [None]
  - Urinary incontinence [None]
  - Blindness [None]
  - Eye irritation [None]
  - Small fibre neuropathy [None]
  - Influenza like illness [None]
  - Fatigue [None]
  - Rash [None]
  - Pruritus [None]
  - White blood cell count decreased [None]
  - Treatment failure [None]
  - Platelet count decreased [None]
  - Stevens-Johnson syndrome [None]
  - Polymenorrhoea [None]

NARRATIVE: CASE EVENT DATE: 20150302
